FAERS Safety Report 6536252-1 (Version None)
Quarter: 2010Q1

REPORT INFORMATION
  Report Type: 
  Country: None (occurrence: None)
  Receive Date: 20100113
  Receipt Date: 20091112
  Transmission Date: 20100710
  Serious: No
  Sender: FDA-Public Use
  Company Number: US-ALLERGAN-0915755US

PATIENT
  Age: 70 Year
  Sex: Female

DRUGS (2)
  1. LATISSE [Suspect]
     Indication: GROWTH OF EYELASHES
     Dosage: 1 GTT, QPM
     Route: 061
     Dates: start: 20090701
  2. OTC LUBRICANT EYE DROP (UNSPECIFIED) [Concomitant]
     Indication: DRY EYE

REACTIONS (1)
  - HAIR GROWTH ABNORMAL [None]
